FAERS Safety Report 16332231 (Version 2)
Quarter: 2019Q3

REPORT INFORMATION
  Report Type: Spontaneous
  Country: US (occurrence: US)
  Receive Date: 20190520
  Receipt Date: 20190716
  Transmission Date: 20191004
  Serious: No
  Sender: FDA-Public Use
  Company Number: US-TEVA-2019-US-1048262

PATIENT
  Age: 38 Year
  Sex: Female
  Weight: 82.63 kg

DRUGS (9)
  1. VITAMIN D [Concomitant]
     Active Substance: VITAMIN D NOS
  2. FOLIC ACID. [Concomitant]
     Active Substance: FOLIC ACID
  3. COPAXONE [Suspect]
     Active Substance: GLATIRAMER ACETATE
     Indication: MULTIPLE SCLEROSIS
     Dosage: FORM STRENGTH UNKNOWN
     Route: 065
  4. VITAMIN B COMPLEX [Concomitant]
     Active Substance: CYANOCOBALAMIN\DEXPANTHENOL\NIACINAMIDE\PYRIDOXINE HYDROCHLORIDE\RIBOFLAVIN 5^-PHOSPHATE SODIUM\THIAMINE HYDROCHLORIDE\VITAMIN B COMPLEX
     Indication: METABOLIC DISORDER
  5. SERTRALINE [Concomitant]
     Active Substance: SERTRALINE HYDROCHLORIDE
     Indication: DEPRESSION
  6. AMLODIPINE [Concomitant]
     Active Substance: AMLODIPINE BESYLATE
     Indication: BLOOD PRESSURE MEASUREMENT
  7. HYDROCHLOROTHIAZIDE. [Concomitant]
     Active Substance: HYDROCHLOROTHIAZIDE
     Indication: BLOOD PRESSURE MEASUREMENT
  8. OMEPRAZOLE. [Concomitant]
     Active Substance: OMEPRAZOLE
  9. VITAMIN D3 [Concomitant]
     Active Substance: CHOLECALCIFEROL

REACTIONS (8)
  - Confusional state [Not Recovered/Not Resolved]
  - Product dose omission [Unknown]
  - Speech disorder [Not Recovered/Not Resolved]
  - Memory impairment [Unknown]
  - Hypokinesia [Not Recovered/Not Resolved]
  - Fall [Not Recovered/Not Resolved]
  - Condition aggravated [Not Recovered/Not Resolved]
  - Chest pain [Not Recovered/Not Resolved]
